FAERS Safety Report 5209761-5 (Version None)
Quarter: 2006Q4

REPORT INFORMATION
  Report Type: 
  Country: None (occurrence: None)
  Receive Date: 20061128
  Receipt Date: 20060119
  Transmission Date: 20070319
  Serious: Yes (Other)
  Sender: FDA-Public Use
  Company Number: 2006010523

PATIENT

DRUGS (1)
  1. TIKOSYN [Suspect]
     Indication: ILL-DEFINED DISORDER

REACTIONS (5)
  - BRADYCARDIA [None]
  - CHOLINERGIC SYNDROME [None]
  - FEELING ABNORMAL [None]
  - NAUSEA [None]
  - TORSADE DE POINTES [None]
